FAERS Safety Report 10057362 (Version 1)
Quarter: 2014Q2

REPORT INFORMATION
  Report Type: Report from Study
  Country: TW (occurrence: TW)
  Receive Date: 20140403
  Receipt Date: 20140403
  Transmission Date: 20141212
  Serious: Yes (Hospitalization)
  Sender: FDA-Public Use
  Company Number: TW-ABBVIE-13P-153-1090152-00

PATIENT
  Age: 85 Year
  Sex: Male
  Weight: 72 kg

DRUGS (1)
  1. HUMIRA [Suspect]
     Indication: CROHN^S DISEASE
     Route: 058
     Dates: start: 20130415, end: 20130429

REACTIONS (5)
  - Haemorrhage intracranial [Not Recovered/Not Resolved]
  - Altered state of consciousness [Unknown]
  - Muscular weakness [Unknown]
  - Vomiting [Recovered/Resolved]
  - Nausea [Recovered/Resolved]
